FAERS Safety Report 5897209-7 (Version None)
Quarter: 2008Q3

REPORT INFORMATION
  Report Type: 
  Country: None (occurrence: None)
  Receive Date: 20080923
  Receipt Date: 20080908
  Transmission Date: 20090109
  Serious: Yes (Death, Other)
  Sender: FDA-Public Use
  Company Number: KADN20080335

PATIENT
  Age: 40 Year
  Sex: Male

DRUGS (3)
  1. MORPHINE [Suspect]
     Dates: end: 20050101
  2. COCAINE [Suspect]
     Dates: end: 20050101
  3. PHENCYCLIDINE [Suspect]
     Dates: end: 20050101

REACTIONS (5)
  - CONVULSION [None]
  - DRUG SCREEN POSITIVE [None]
  - ELECTROMECHANICAL DISSOCIATION [None]
  - MALAISE [None]
  - VENTRICULAR FIBRILLATION [None]
